FAERS Safety Report 12645088 (Version 18)
Quarter: 2018Q3

REPORT INFORMATION
  Report Type: Report from Study
  Country: FR (occurrence: FR)
  Receive Date: 20160811
  Receipt Date: 20180717
  Transmission Date: 20181010
  Serious: Yes (Hospitalization, Other)
  Sender: FDA-Public Use
  Company Number: FR-INCYTE CORPORATION-2015IN004076

PATIENT

DRUGS (88)
  1. JAKAVI [Suspect]
     Active Substance: RUXOLITINIB
     Dosage: 5 MG, QD
     Route: 048
     Dates: start: 20160902
  2. ARANESP [Suspect]
     Active Substance: DARBEPOETIN ALFA
     Indication: ANAEMIA PROPHYLAXIS
     Dosage: 500 MG, UNK (EVERY 15 DAYS)
     Route: 065
     Dates: start: 20160630, end: 20170210
  3. PREVISCAN [Concomitant]
     Dosage: 20 MG, UNK (1 QUARTER /HALF DF DAILY)
     Route: 065
     Dates: end: 20160817
  4. PROPANOLOL [Concomitant]
     Active Substance: PROPRANOLOL HYDROCHLORIDE
     Dosage: 160 MG, QD
     Route: 065
     Dates: end: 20160604
  5. PROPANOLOL [Concomitant]
     Active Substance: PROPRANOLOL HYDROCHLORIDE
     Dosage: 2 DF, QD 40 MG(1 DF MORNING AND 1 DF EVENING)
     Route: 065
     Dates: end: 201702
  6. AUGMENTIN [Concomitant]
     Active Substance: AMOXICILLIN\CLAVULANATE POTASSIUM
     Indication: LUNG DISORDER
     Dosage: 1 G, TID
     Route: 048
     Dates: start: 20150219, end: 20150308
  7. AUGMENTIN [Concomitant]
     Active Substance: AMOXICILLIN\CLAVULANATE POTASSIUM
     Indication: BRONCHOPNEUMOPATHY
  8. DIFFU K [Concomitant]
     Active Substance: POTASSIUM CHLORIDE
     Dosage: 600 MG, (2 DF MORNING, 1 DF NOON, 1 DF EVENING)
     Route: 048
     Dates: start: 201703
  9. EUPANTOL [Concomitant]
     Active Substance: PANTOPRAZOLE SODIUM
     Indication: GASTRODUODENITIS
     Dosage: 40 MG, QD
     Route: 048
     Dates: start: 201606, end: 201703
  10. DIAMICRON [Concomitant]
     Active Substance: GLICLAZIDE
     Indication: DIABETES MELLITUS
     Dosage: 30 MG, QD
     Route: 048
     Dates: start: 201605, end: 201702
  11. PREVISCAN [Concomitant]
     Indication: THROMBOSIS PROPHYLAXIS
     Dosage: 20 MG, QD (0.75 DF)
     Route: 065
     Dates: start: 20160314
  12. PROPANOLOL [Concomitant]
     Active Substance: PROPRANOLOL HYDROCHLORIDE
     Dosage: 2 DF, QD 40 MG(1 DF MORNING AND 1 DF EVENING)
     Route: 065
     Dates: start: 201702, end: 201702
  13. AUGMENTIN [Concomitant]
     Active Substance: AMOXICILLIN\CLAVULANATE POTASSIUM
     Indication: BRONCHITIS
     Dosage: 1 G, BID
     Route: 065
     Dates: start: 20160512, end: 20160522
  14. OXYGEN. [Concomitant]
     Active Substance: OXYGEN
     Dosage: UNK
     Route: 065
  15. INEXIUM [Concomitant]
     Active Substance: ESOMEPRAZOLE
     Indication: GASTRODUODENITIS
     Dosage: 20 MG, QD
     Route: 048
     Dates: start: 201603, end: 201603
  16. VENTOLINE [Concomitant]
     Active Substance: ALBUTEROL
     Indication: RESPIRATORY FAILURE
     Dosage: 100 UG, UNK (2 PUFFS TID IF NEEDED, AEROSOL)
     Route: 065
     Dates: start: 201605
  17. ESIDREX [Concomitant]
     Active Substance: HYDROCHLOROTHIAZIDE
     Indication: CARDIAC FAILURE
     Dosage: 0.5 DF, QD
     Route: 048
     Dates: start: 201605, end: 201610
  18. JAKAVI [Suspect]
     Active Substance: RUXOLITINIB
     Dosage: 5 MG, BID
     Route: 065
     Dates: end: 20170209
  19. ARANESP [Suspect]
     Active Substance: DARBEPOETIN ALFA
     Indication: MYELOFIBROSIS
     Dosage: 500 UG, QMO
     Route: 058
     Dates: end: 20160629
  20. PREVISCAN [Concomitant]
     Indication: INFARCTION
     Dosage: 20 MG, QD (0.5 DF)
     Route: 065
     Dates: start: 20080206
  21. PREVISCAN [Concomitant]
     Dosage: 0.5 DF, QD
     Route: 065
  22. AMLOR [Concomitant]
     Active Substance: AMLODIPINE BESYLATE
     Indication: HYPERTENSION
     Dosage: 5 MG, QD
     Route: 065
     Dates: start: 20160308
  23. JANUVIA [Concomitant]
     Active Substance: SITAGLIPTIN PHOSPHATE
     Indication: DIABETES MELLITUS
     Dosage: 50 MG, BID (1 DF MORNING/1 DF EVENING)
     Route: 065
     Dates: start: 20140821, end: 20160413
  24. DIFFU K [Concomitant]
     Active Substance: POTASSIUM CHLORIDE
     Dosage: 600 MG, QD
     Route: 048
     Dates: start: 20160610, end: 201608
  25. ESOMEPRAZOLE [Concomitant]
     Active Substance: ESOMEPRAZOLE
     Indication: GASTRODUODENITIS
     Dosage: 20 MG, QD
     Route: 048
     Dates: start: 201703
  26. ESOMEPRAZOLE [Concomitant]
     Active Substance: ESOMEPRAZOLE
     Dosage: 20 MG, QD
     Route: 048
     Dates: start: 201703
  27. ALDACTONE [Concomitant]
     Active Substance: SPIRONOLACTONE
     Dosage: 0.5 DF, QD (25 MG)
     Route: 048
     Dates: start: 201703
  28. UMULINE [Concomitant]
     Active Substance: INSULIN HUMAN
     Indication: DIABETES MELLITUS
     Dosage: 26 IU, BID
     Route: 058
     Dates: start: 201609
  29. UMULINE [Concomitant]
     Active Substance: INSULIN HUMAN
     Dosage: 32 UI MORNING, 18 UI EVENING
     Route: 058
     Dates: start: 20170218, end: 20170228
  30. AMLODIPINE [Concomitant]
     Active Substance: AMLODIPINE BESYLATE
     Indication: HYPERTENSION
     Dosage: 5 MG, QD
     Route: 048
     Dates: start: 201603, end: 201609
  31. JAKAVI [Suspect]
     Active Substance: RUXOLITINIB
     Dosage: 5 MG, BID
     Route: 048
     Dates: start: 20141016, end: 20160818
  32. PROPANOLOL [Concomitant]
     Active Substance: PROPRANOLOL HYDROCHLORIDE
     Dosage: 2 DF, BID  40 MG (MORNING AND EVENING)
     Route: 065
     Dates: start: 20160605, end: 20160606
  33. PROPANOLOL [Concomitant]
     Active Substance: PROPRANOLOL HYDROCHLORIDE
     Dosage: 2 DF, BID 40 MG (MORNING AND EVENING)
     Route: 065
     Dates: start: 201702
  34. ALLOPURINOL. [Concomitant]
     Active Substance: ALLOPURINOL
     Dosage: 300 MG, QD
     Route: 048
     Dates: start: 20160819
  35. ALDACTONE [Concomitant]
     Active Substance: SPIRONOLACTONE
     Indication: OEDEMA
     Dosage: 25 MG, QD
     Route: 048
     Dates: start: 201702, end: 201702
  36. CANCIDAS [Concomitant]
     Active Substance: CASPOFUNGIN ACETATE
     Indication: PERITONEAL CANDIDIASIS
     Dosage: 70 MG, QD
     Route: 042
     Dates: start: 20170216, end: 20170226
  37. JAKAVI [Suspect]
     Active Substance: RUXOLITINIB
     Dosage: 15 MG, BID
     Route: 048
  38. PREVISCAN [Concomitant]
     Dosage: 20 MG, 3 QUARTERS DF DAILY
     Route: 065
     Dates: start: 20160314, end: 201603
  39. PREVISCAN [Concomitant]
     Dosage: 20 MG, UNK (1 QUARTER DF DAILY)
     Route: 065
     Dates: start: 20170307, end: 201703
  40. PROPANOLOL [Concomitant]
     Active Substance: PROPRANOLOL HYDROCHLORIDE
     Dosage: 3 DF, BID 40 MG (2 DF MORNING AND 1 DF EVENING)
     Route: 065
     Dates: start: 20160607
  41. PROPANOLOL [Concomitant]
     Active Substance: PROPRANOLOL HYDROCHLORIDE
     Dosage: 3 DF, QD 40 MG(2 DF MORNING AND 1 DF EVENING)
     Route: 065
     Dates: start: 201702, end: 201702
  42. LOXEN//NICARDIPINE HYDROCHLORIDE [Concomitant]
     Active Substance: NICARDIPINE HYDROCHLORIDE
     Indication: HYPERTENSION
     Dosage: 20 MG, QD
     Route: 065
     Dates: start: 20160307, end: 20160307
  43. CRESTOR [Concomitant]
     Active Substance: ROSUVASTATIN CALCIUM
     Indication: HYPERCHOLESTEROLAEMIA
     Dosage: 10 MG, QD
     Route: 065
     Dates: start: 20151106, end: 201604
  44. LANTUS [Concomitant]
     Active Substance: INSULIN GLARGINE
     Indication: DIABETES MELLITUS
     Dosage: 32 IU, QD
     Route: 058
     Dates: end: 201603
  45. LANTUS [Concomitant]
     Active Substance: INSULIN GLARGINE
     Dosage: 30 IU, QD
     Route: 058
     Dates: start: 201603, end: 201603
  46. LANTUS [Concomitant]
     Active Substance: INSULIN GLARGINE
     Dosage: 20 IU, QD
     Route: 058
     Dates: start: 201603, end: 201604
  47. LANTUS [Concomitant]
     Active Substance: INSULIN GLARGINE
     Dosage: 15 IU, QD
     Route: 058
     Dates: start: 201703, end: 201703
  48. DIFFU K [Concomitant]
     Active Substance: POTASSIUM CHLORIDE
     Dosage: 2 DF, TID (600 MG)
     Route: 048
     Dates: start: 20160309, end: 20160609
  49. DIFFU K [Concomitant]
     Active Substance: POTASSIUM CHLORIDE
     Dosage: 2 DF, TID (600 MG)
     Route: 048
     Dates: start: 20161020, end: 201702
  50. DIFFU K [Concomitant]
     Active Substance: POTASSIUM CHLORIDE
     Dosage: 4 DF, UNK (600 MG) (2 DF MORNING, 2 DF EVENING)
     Route: 048
     Dates: start: 201702, end: 201702
  51. KARDEGIC [Concomitant]
     Active Substance: ASPIRIN DL-LYSINE
     Indication: ISCHAEMIC CARDIOMYOPATHY
     Dosage: 75 MG, QD
     Route: 048
     Dates: start: 201606, end: 20160818
  52. BISOCE [Concomitant]
     Active Substance: BISOPROLOL
     Indication: CARDIAC FAILURE
     Dosage: 5 MG, QD
     Route: 048
     Dates: start: 201702, end: 201702
  53. PROPANOLOL [Concomitant]
     Active Substance: PROPRANOLOL HYDROCHLORIDE
     Indication: EXTRASYSTOLES
     Dosage: 200 MG, QD (160 MG IN THE MORNING, 40 MG IN THE EVENING)
     Route: 065
     Dates: start: 2011
  54. FLECAINE [Concomitant]
     Active Substance: FLECAINIDE
     Indication: EXTRASYSTOLES
     Dosage: 50 MG, QD
     Route: 065
     Dates: start: 20130718
  55. FLECAINE LP [Concomitant]
     Active Substance: FLECAINIDE
     Indication: TACHYCARDIA
     Dosage: 50 MG, QD
     Route: 065
     Dates: start: 20140220, end: 20160602
  56. LANTUS [Concomitant]
     Active Substance: INSULIN GLARGINE
     Dosage: 27 IU, QD
     Route: 058
     Dates: start: 201609, end: 201609
  57. OXYGEN. [Concomitant]
     Active Substance: OXYGEN
     Indication: PRODUCT USED FOR UNKNOWN INDICATION
     Dosage: UNK
     Route: 065
  58. HEPARIN [Concomitant]
     Active Substance: HEPARIN SODIUM
     Indication: THROMBOSIS PROPHYLAXIS
     Dosage: 1.4 ML/H
     Route: 042
     Dates: start: 20170219, end: 20170227
  59. PARACETAMOL [Concomitant]
     Active Substance: ACETAMINOPHEN
     Dosage: 1 G, UNK (4 DF DAILY IF NEEDED)
     Route: 048
     Dates: start: 201606
  60. COLCHIMAX [Concomitant]
     Active Substance: COLCHICINE\DICYCLOMINE HYDROCHLORIDE
     Indication: OSTEOARTHRITIS
     Dosage: UNK UNK, BID (1/50/12.5 MG)
     Route: 048
     Dates: start: 20160819, end: 20160825
  61. ALLOPURINOL. [Concomitant]
     Active Substance: ALLOPURINOL
     Indication: OSTEOARTHRITIS
     Dosage: 300 MG, QD
     Route: 048
     Dates: start: 20160819
  62. AMLODIPINE [Concomitant]
     Active Substance: AMLODIPINE BESYLATE
     Dosage: 10 MG, QD
     Route: 048
     Dates: start: 201609, end: 201610
  63. PREVISCAN [Concomitant]
     Dosage: 20 MG,  (1 QUARTER DF DAILY)
     Route: 065
     Dates: start: 20151107, end: 20160313
  64. PREVISCAN [Concomitant]
     Dosage: 0.5 DF, QD (20 MG)
     Route: 065
     Dates: start: 20160331, end: 20160529
  65. PREVISCAN [Concomitant]
     Dosage: 20 MG, UNK (3 QUARTERS DF DAILY)
     Route: 065
     Dates: start: 20160609
  66. PREVISCAN [Concomitant]
     Dosage: 0.5 DF, UNK (20 MG)
     Route: 065
     Dates: start: 20160818, end: 20160913
  67. PREVISCAN [Concomitant]
     Dosage: 20 MG, UNK (1 QUARTER DF DAILY)
     Route: 065
     Dates: start: 20160914
  68. PREVISCAN [Concomitant]
     Dosage: 0.5 DF, QD (20 MG))
     Route: 065
     Dates: end: 20161013
  69. PREVISCAN [Concomitant]
     Dosage: 0.5 DF, QD ( 20 MG)
     Route: 065
     Dates: start: 20170228, end: 20170228
  70. PREVISCAN [Concomitant]
     Dosage: 20 MG, UNK (3 QUARTERS DF DAILY)
     Route: 065
     Dates: start: 201703
  71. PROPANOLOL [Concomitant]
     Active Substance: PROPRANOLOL HYDROCHLORIDE
     Indication: HAEMORRHAGE PROPHYLAXIS
     Dosage: 40 MG, QD
     Route: 065
     Dates: end: 20160603
  72. JANUVIA [Concomitant]
     Active Substance: SITAGLIPTIN PHOSPHATE
     Dosage: 50 MG, BID (2 DF MORNING)
     Route: 065
     Dates: start: 20160414, end: 201608
  73. LANTUS [Concomitant]
     Active Substance: INSULIN GLARGINE
     Dosage: 26 IU, QD
     Route: 058
     Dates: start: 201604, end: 201609
  74. AUGMENTIN [Concomitant]
     Active Substance: AMOXICILLIN\CLAVULANATE POTASSIUM
     Dosage: 1 G, TID
     Route: 048
     Dates: start: 20130401, end: 20130408
  75. HEPARIN [Concomitant]
     Active Substance: HEPARIN SODIUM
     Indication: THROMBOSIS PROPHYLAXIS
     Dosage: 1 ML/H
     Route: 042
     Dates: start: 20170210, end: 20170213
  76. HEPARIN [Concomitant]
     Active Substance: HEPARIN SODIUM
     Indication: TACHYCARDIA
     Dosage: 1.3 ML/H
     Route: 042
     Dates: start: 20170214, end: 20170218
  77. PARACETAMOL [Concomitant]
     Active Substance: ACETAMINOPHEN
     Indication: OSTEOARTHRITIS
     Dosage: 1 G, UNK (4 DF DAILY IF NEEDED)
     Route: 048
     Dates: start: 201606
  78. TAZOCILLINE [Concomitant]
     Active Substance: PIPERACILLIN SODIUM\TAZOBACTAM SODIUM
     Indication: INTESTINAL SEPSIS
     Dosage: 3 DF, UNK (4 / 0.5 G)
     Route: 042
     Dates: start: 20170215, end: 20170222
  79. JAKAVI [Suspect]
     Active Substance: RUXOLITINIB
     Indication: MYELOFIBROSIS
     Dosage: 30 MG, QD
     Route: 048
     Dates: start: 20120301, end: 20120405
  80. JAKAVI [Suspect]
     Active Substance: RUXOLITINIB
     Dosage: 5 MG, QD
     Route: 065
     Dates: start: 20170210
  81. PREVISCAN [Concomitant]
     Dosage: 0.5 DF, QD (20 MG)
     Route: 065
     Dates: start: 20160604, end: 20160608
  82. CRESTOR [Concomitant]
     Active Substance: ROSUVASTATIN CALCIUM
     Dosage: 5 MG, QD
     Route: 065
     Dates: start: 201604, end: 2016
  83. DIFFU K [Concomitant]
     Active Substance: POTASSIUM CHLORIDE
     Indication: HYPOKALAEMIA
     Dosage: 3 DF, TID (600 MG)
     Route: 048
     Dates: start: 201511, end: 20160308
  84. DIFFU K [Concomitant]
     Active Substance: POTASSIUM CHLORIDE
     Dosage: 1 DF, BID (600 MG) (1 DF MORNING, 1 DF EVENING)
     Route: 048
     Dates: start: 201610, end: 201610
  85. ELIQUIS [Concomitant]
     Active Substance: APIXABAN
     Indication: THROMBOSIS PROPHYLAXIS
     Dosage: 2 DF, QD (5MG)
     Route: 065
     Dates: start: 20161014, end: 20170213
  86. ELIQUIS [Concomitant]
     Active Substance: APIXABAN
     Indication: TACHYCARDIA
  87. UMULINE [Concomitant]
     Active Substance: INSULIN HUMAN
     Dosage: 30 UI MORNING, 18 UI EVENING
     Route: 058
     Dates: start: 20170209, end: 20170217
  88. NOVORAPID [Concomitant]
     Active Substance: INSULIN ASPART
     Indication: DIABETES MELLITUS
     Dosage: 100 IU/ML, (11 UI MORNING, 11 UI NOON, 10 UI EVENING)
     Route: 058
     Dates: start: 20170301, end: 201703

REACTIONS (74)
  - Pneumonitis [Recovered/Resolved]
  - Arrhythmia [Unknown]
  - Goitre [Unknown]
  - Pneumonia [Recovered/Resolved]
  - Thyroid mass [Unknown]
  - Orthopnoea [Unknown]
  - Oral candidiasis [Recovered/Resolved]
  - Thrombosis mesenteric vessel [Unknown]
  - Acute kidney injury [Recovered/Resolved]
  - Anaemia [Recovered/Resolved]
  - Hypertrophic cardiomyopathy [Not Recovered/Not Resolved]
  - Insomnia [Recovered/Resolved]
  - Metrorrhagia [Unknown]
  - Haematoma [Recovered/Resolved]
  - Productive cough [Unknown]
  - Hypoxia [Recovered/Resolved]
  - Type 2 diabetes mellitus [Recovered/Resolved]
  - Bronchitis [Recovered/Resolved]
  - Respiratory failure [Not Recovered/Not Resolved]
  - Eschar [Not Recovered/Not Resolved]
  - Osteoarthritis [Recovered/Resolved]
  - Acute kidney injury [Recovered/Resolved]
  - Acute kidney injury [Recovered/Resolved]
  - Cardiac failure [Recovered/Resolved]
  - Lung disorder [Recovered/Resolved]
  - Cardiac failure [Recovered/Resolved]
  - Rales [Unknown]
  - Hyperthyroidism [Not Recovered/Not Resolved]
  - Chills [Unknown]
  - Tachyarrhythmia [Recovered/Resolved]
  - Diverticulum intestinal [Not Recovered/Not Resolved]
  - Bronchitis viral [Recovered/Resolved]
  - Nephroangiosclerosis [Unknown]
  - Chronic kidney disease [Not Recovered/Not Resolved]
  - Abdominal sepsis [Recovered/Resolved]
  - Acute kidney injury [Recovered/Resolved]
  - Endometrial hyperplasia [Unknown]
  - Ecchymosis [Recovered/Resolved]
  - Restrictive pulmonary disease [Not Recovered/Not Resolved]
  - Atrial fibrillation [Recovered/Resolved]
  - Atrial fibrillation [Recovered/Resolved]
  - Pulmonary arterial hypertension [Not Recovered/Not Resolved]
  - Cardiac failure [Not Recovered/Not Resolved]
  - Acute kidney injury [Recovered/Resolved]
  - Diabetic nephropathy [Not Recovered/Not Resolved]
  - Cardiac failure [Recovered/Resolved]
  - Cardiac failure [Recovered/Resolved]
  - Cardiac murmur [Unknown]
  - Cardiac failure [Recovered/Resolved]
  - Cardiac failure [Recovered/Resolved]
  - Bronchitis [Recovered/Resolved]
  - Dyspnoea [Unknown]
  - Gastroduodenitis [Not Recovered/Not Resolved]
  - Oedema peripheral [Not Recovered/Not Resolved]
  - Sciatica [Recovered/Resolved]
  - Cardiac failure [Recovered/Resolved]
  - Lung disorder [Recovered/Resolved]
  - Hypokalaemia [Recovered/Resolved]
  - Respiratory syncytial virus bronchitis [Recovered/Resolved]
  - Tachyarrhythmia [Recovered/Resolved]
  - Acute kidney injury [Recovered/Resolved]
  - Aortic valve stenosis [Recovered/Resolved]
  - Cardiorenal syndrome [Recovered/Resolved]
  - Cardiac failure [Recovered/Resolved]
  - Cardiac failure [Recovered/Resolved]
  - Cough [Unknown]
  - Acute kidney injury [Recovered/Resolved]
  - Cardiac failure [Recovered/Resolved]
  - Cardiac valve disease [Not Recovered/Not Resolved]
  - Glomerulonephropathy [Recovered/Resolved with Sequelae]
  - Chest discomfort [Unknown]
  - Peritoneal candidiasis [Recovered/Resolved]
  - Pulmonary arterial hypertension [Recovered/Resolved]
  - Depression [Not Recovered/Not Resolved]

NARRATIVE: CASE EVENT DATE: 201204
